FAERS Safety Report 17915737 (Version 2)
Quarter: 2020Q3

REPORT INFORMATION
  Report Type: Report from Study
  Country: US (occurrence: US)
  Receive Date: 20200619
  Receipt Date: 20200723
  Transmission Date: 20201103
  Serious: Yes (Death, Hospitalization)
  Sender: FDA-Public Use
  Company Number: US-APOPHARMA INC-2020AP012657

PATIENT
  Sex: Female
  Weight: 71 kg

DRUGS (16)
  1. DEFERIPRONE [Suspect]
     Active Substance: DEFERIPRONE
     Dosage: 14 MG/KG, TID
     Route: 048
     Dates: start: 20140815, end: 20191019
  2. CYMBALTA [Concomitant]
     Active Substance: DULOXETINE HYDROCHLORIDE
     Route: 065
  3. PANTOPRAZOLE [Concomitant]
     Active Substance: PANTOPRAZOLE
     Route: 065
  4. DONEPEZIL HCL [Concomitant]
     Active Substance: DONEPEZIL HYDROCHLORIDE
     Dosage: 5 MG, QD
     Route: 065
     Dates: start: 2020
  5. COLCHICINE. [Concomitant]
     Active Substance: COLCHICINE
     Route: 065
  6. CARVEDILOL. [Concomitant]
     Active Substance: CARVEDILOL
     Route: 065
  7. AMLODIPINE [Concomitant]
     Active Substance: AMLODIPINE BESYLATE
     Route: 065
  8. DEFERIPRONE [Suspect]
     Active Substance: DEFERIPRONE
     Dosage: 14 MG/KG, TID
     Route: 048
     Dates: start: 20191019, end: 2020
  9. DANAZOL. [Concomitant]
     Active Substance: DANAZOL
     Route: 065
  10. FOLIC ACID. [Concomitant]
     Active Substance: FOLIC ACID
     Route: 065
  11. NOVOLIN N [Concomitant]
     Active Substance: INSULIN HUMAN
     Route: 065
  12. VITAMIN B12 [Concomitant]
     Active Substance: CYANOCOBALAMIN
     Route: 065
  13. ALLOPURINOL. [Concomitant]
     Active Substance: ALLOPURINOL
     Route: 065
  14. ASPIRIN                            /00002701/ [Concomitant]
     Active Substance: ASPIRIN
     Route: 065
  15. DIOVAN [Concomitant]
     Active Substance: VALSARTAN
     Route: 065
  16. LEVOTHYROXINE. [Concomitant]
     Active Substance: LEVOTHYROXINE
     Route: 065

REACTIONS (2)
  - Hospitalisation [Recovered/Resolved]
  - Hospice care [Fatal]

NARRATIVE: CASE EVENT DATE: 2020
